FAERS Safety Report 12316555 (Version 1)
Quarter: 2016Q2

REPORT INFORMATION
  Report Type: Spontaneous
  Country: CA (occurrence: CA)
  Receive Date: 20160429
  Receipt Date: 20160429
  Transmission Date: 20160815
  Serious: Yes (Other)
  Sender: FDA-Public Use
  Company Number: CA-AMGEN-CANSP2016052765

PATIENT
  Age: 76 Year
  Sex: Female
  Weight: 106 kg

DRUGS (6)
  1. PROLIA [Suspect]
     Active Substance: DENOSUMAB
     Indication: PRODUCT USED FOR UNKNOWN INDICATION
     Dosage: 60 MG, Q6MO
     Route: 058
  2. ASAPHEN [Concomitant]
     Active Substance: ASPIRIN
     Route: 048
  3. VESICARE [Concomitant]
     Active Substance: SOLIFENACIN SUCCINATE
     Route: 048
  4. BEZALIP [Concomitant]
     Active Substance: BEZAFIBRATE
     Route: 048
  5. METFORMIN [Concomitant]
     Active Substance: METFORMIN HYDROCHLORIDE
     Route: 048
  6. ACT EZETIMIBE [Concomitant]
     Route: 048

REACTIONS (6)
  - Mobility decreased [Unknown]
  - Decreased appetite [Unknown]
  - Asthenia [Unknown]
  - Weight decreased [Unknown]
  - Myalgia [Unknown]
  - Peripheral nerve lesion [Unknown]
